FAERS Safety Report 15898012 (Version 1)
Quarter: 2019Q1

REPORT INFORMATION
  Report Type: Spontaneous
  Country: BR (occurrence: BR)
  Receive Date: 20190201
  Receipt Date: 20190201
  Transmission Date: 20190417
  Serious: Yes (Other)
  Sender: FDA-Public Use
  Company Number: BR-009507513-1901BRA012152

PATIENT
  Age: 81 Year
  Sex: Male
  Weight: 70 kg

DRUGS (2)
  1. JANUVIA [Suspect]
     Active Substance: SITAGLIPTIN PHOSPHATE
     Indication: DIABETES MELLITUS
     Dosage: 50 MG
     Route: 048
  2. JANUVIA [Suspect]
     Active Substance: SITAGLIPTIN PHOSPHATE
     Indication: DIABETES MELLITUS
     Dosage: TABLET 100MG
     Route: 048

REACTIONS (8)
  - Cardiac disorder [Unknown]
  - Anxiety [Unknown]
  - Blood pressure abnormal [Unknown]
  - Myocardial infarction [Recovered/Resolved]
  - Coagulopathy [Unknown]
  - Gastric disorder [Unknown]
  - Diabetes mellitus inadequate control [Recovered/Resolved]
  - Blood cholesterol abnormal [Unknown]

NARRATIVE: CASE EVENT DATE: 2017
